FAERS Safety Report 12276174 (Version 1)
Quarter: 2016Q2

REPORT INFORMATION
  Report Type: Spontaneous
  Country: GB (occurrence: GB)
  Receive Date: 20160418
  Receipt Date: 20160418
  Transmission Date: 20160815
  Serious: Yes (Other)
  Sender: FDA-Public Use
  Company Number: GB-HOSPIRA-3255142

PATIENT

DRUGS (1)
  1. DEFEROXAMINE MESILATE [Suspect]
     Active Substance: DEFEROXAMINE MESYLATE
     Indication: HAEMOCHROMATOSIS

REACTIONS (2)
  - Retinogram abnormal [Unknown]
  - Retinopathy sickle cell [Unknown]
